FAERS Safety Report 6846838-2 (Version None)
Quarter: 2010Q3

REPORT INFORMATION
  Report Type: 
  Country: None (occurrence: None)
  Receive Date: 20100715
  Receipt Date: 20070919
  Transmission Date: 20110219
  Serious: Yes (Other)
  Sender: FDA-Public Use
  Company Number: US-PFIZER INC-2007079801

PATIENT
  Sex: Female
  Weight: 89.09 kg

DRUGS (7)
  1. CHANTIX [Suspect]
     Dates: start: 20070912, end: 20070901
  2. MORPHINE [Concomitant]
  3. LORTAB [Concomitant]
  4. TRAZODONE HYDROCHLORIDE [Concomitant]
  5. ZOLOFT [Concomitant]
  6. CLONAZEPAM [Concomitant]
  7. ALBUTEROL [Concomitant]

REACTIONS (6)
  - ABNORMAL DREAMS [None]
  - CHEST PAIN [None]
  - DISSOCIATION [None]
  - HEADACHE [None]
  - SLEEP DISORDER [None]
  - SOMNOLENCE [None]
